FAERS Safety Report 24236234 (Version 1)
Quarter: 2024Q3

REPORT INFORMATION
  Report Type: Spontaneous
  Country: US (occurrence: US)
  Receive Date: 20240822
  Receipt Date: 20240822
  Transmission Date: 20241017
  Serious: No
  Sender: ABBVIE
  Company Number: US-ABBVIE-5880453

PATIENT
  Sex: Female

DRUGS (1)
  1. UPADACITINIB [Suspect]
     Active Substance: UPADACITINIB
     Indication: Colitis ulcerative
     Route: 048

REACTIONS (2)
  - Diarrhoea [Unknown]
  - Product residue present [Unknown]
